FAERS Safety Report 5733288-5 (Version None)
Quarter: 2008Q2

REPORT INFORMATION
  Report Type: 
  Country: None (occurrence: None)
  Receive Date: 20080509
  Receipt Date: 20080428
  Transmission Date: 20081010
  Serious: Yes (Other)
  Sender: FDA-Public Use
  Company Number: B0519386A

PATIENT
  Sex: Female

DRUGS (4)
  1. PAROXETINE HCL [Suspect]
     Indication: ANXIETY
     Dates: start: 19970902
  2. PROPRANOLOL [Concomitant]
  3. FLUOXETINE [Concomitant]
  4. CITALOPRAM HYDROBROMIDE [Concomitant]

REACTIONS (17)
  - AGORAPHOBIA [None]
  - BALANCE DISORDER [None]
  - CANDIDIASIS [None]
  - DEPERSONALISATION [None]
  - DEPRESSED MOOD [None]
  - DEPRESSION [None]
  - DIZZINESS [None]
  - DRUG DEPENDENCE [None]
  - DRUG WITHDRAWAL SYNDROME [None]
  - EMOTIONAL DISTRESS [None]
  - HEADACHE [None]
  - INSOMNIA [None]
  - LIBIDO DECREASED [None]
  - MALAISE [None]
  - NAUSEA [None]
  - PANIC ATTACK [None]
  - PARAESTHESIA [None]
